FAERS Safety Report 7686012-3 (Version None)
Quarter: 2011Q3

REPORT INFORMATION
  Report Type: 
  Country: None (occurrence: None)
  Receive Date: 20110816
  Receipt Date: 20110811
  Transmission Date: 20111222
  Serious: No
  Sender: FDA-Public Use
  Company Number: US-PFIZER INC-2011184149

PATIENT
  Sex: Female
  Weight: 49.887 kg

DRUGS (2)
  1. ADVIL LIQUI-GELS [Suspect]
     Dosage: 200 MG, 1X/DAY
     Route: 048
     Dates: start: 20110715
  2. ADVIL LIQUI-GELS [Suspect]
     Dosage: 200 MG, UNK
     Route: 048

REACTIONS (2)
  - DRUG INEFFECTIVE [None]
  - DISCOMFORT [None]
